FAERS Safety Report 6924352-3 (Version None)
Quarter: 2010Q3

REPORT INFORMATION
  Report Type: 
  Country: None (occurrence: None)
  Receive Date: 20100811
  Receipt Date: 20100811
  Transmission Date: 20110219
  Serious: No
  Sender: FDA-Public Use
  Company Number: None

PATIENT
  Sex: Female
  Weight: 84.8226 kg

DRUGS (1)
  1. BACTRIM DS [Suspect]
     Indication: BACTERIAL INFECTION
     Dosage: 800/160 BID ORAL
     Route: 048
     Dates: start: 20071222

REACTIONS (2)
  - INSOMNIA [None]
  - POLLAKIURIA [None]
